FAERS Safety Report 9676981 (Version 1)
Quarter: 2013Q4

REPORT INFORMATION
  Report Type: Spontaneous
  Country: US (occurrence: US)
  Receive Date: 20131108
  Receipt Date: 20131108
  Transmission Date: 20140711
  Serious: Yes (Hospitalization)
  Sender: FDA-Public Use
  Company Number: US-RANBAXY-2013US-74947

PATIENT
  Age: 20 Year
  Sex: Female

DRUGS (1)
  1. PARACETAMOL [Suspect]
     Indication: PRODUCT USED FOR UNKNOWN INDICATION
     Dosage: 400 TABS OF PARACETAMOL 500 MG
     Route: 048

REACTIONS (3)
  - Overdose [Recovered/Resolved]
  - Coma [Recovered/Resolved]
  - Acidosis [Recovered/Resolved]
